FAERS Safety Report 7099003-0 (Version None)
Quarter: 2010Q4

REPORT INFORMATION
  Report Type: 
  Country: None (occurrence: None)
  Receive Date: 20101112
  Receipt Date: 20101102
  Transmission Date: 20110411
  Serious: Yes (Other)
  Sender: FDA-Public Use
  Company Number: US-MYLANLABS-2010S1020170

PATIENT
  Age: 72 Year
  Sex: Female

DRUGS (9)
  1. FENTANYL-100 [Suspect]
     Indication: PAIN
     Route: 062
     Dates: start: 20101013, end: 20101015
  2. FENTANYL-100 [Suspect]
     Indication: NEURALGIA
     Route: 062
     Dates: start: 20101013, end: 20101015
  3. LIDODERM [Concomitant]
  4. LIDODERM [Concomitant]
  5. ONDANSETRON [Concomitant]
  6. DIAZEPAM [Concomitant]
  7. MILK OF MAGNESIA TAB [Concomitant]
  8. SIMVASTATIN [Concomitant]
  9. OMEPRAZOLE [Concomitant]

REACTIONS (3)
  - DRUG EFFECT INCREASED [None]
  - FALL [None]
  - PAIN [None]
